FAERS Safety Report 5146106-3 (Version None)
Quarter: 2006Q4

REPORT INFORMATION
  Report Type: 
  Country: None (occurrence: None)
  Receive Date: 20061108
  Receipt Date: 20060803
  Transmission Date: 20070319
  Serious: Yes (Hospitalization)
  Sender: FDA-Public Use
  Company Number: 2006CG01325

PATIENT
  Age: 58 Year
  Sex: Female
  Weight: 83 kg

DRUGS (11)
  1. FASLODEX [Suspect]
     Indication: BREAST CANCER FEMALE
     Route: 030
     Dates: start: 20060601, end: 20060601
  2. CALCIUM FOLINATE AGUETTANT [Suspect]
     Indication: BREAST CANCER FEMALE
     Route: 042
     Dates: start: 20060307, end: 20060518
  3. ROCEPHIN [Suspect]
     Dates: start: 20060601, end: 20060619
  4. CIFLOX [Suspect]
     Dates: start: 20060620, end: 20060704
  5. FLUOROURACIL [Suspect]
     Indication: BREAST CANCER FEMALE
     Route: 042
     Dates: start: 20060307, end: 20060518
  6. GRANOCYTE [Suspect]
     Dates: start: 20060307, end: 20060518
  7. FLAGYL [Suspect]
     Dates: start: 20060601, end: 20060704
  8. MITOMYCIN [Suspect]
     Indication: BREAST CANCER FEMALE
     Route: 042
     Dates: start: 20060307, end: 20060518
  9. ZOFRAN [Suspect]
     Dates: start: 20060307, end: 20060518
  10. NAVELBINE [Suspect]
     Indication: BREAST CANCER FEMALE
     Route: 042
     Dates: start: 20060307, end: 20060518
  11. ZOMETA [Suspect]
     Indication: BREAST CANCER FEMALE
     Route: 042
     Dates: start: 20060601, end: 20060601

REACTIONS (9)
  - ABDOMINAL PAIN [None]
  - ANTINUCLEAR ANTIBODY POSITIVE [None]
  - CUTANEOUS VASCULITIS [None]
  - ILEITIS [None]
  - LEUKOCYTOCLASTIC VASCULITIS [None]
  - NEPHROTIC SYNDROME [None]
  - PYREXIA [None]
  - RENAL VASCULITIS [None]
  - VASCULAR PURPURA [None]
